FAERS Safety Report 12990982 (Version 5)
Quarter: 2017Q3

REPORT INFORMATION
  Report Type: Spontaneous
  Country: JP (occurrence: JP)
  Receive Date: 20161201
  Receipt Date: 20170906
  Transmission Date: 20171127
  Serious: Yes (Life-Threatening, Hospitalization, Other)
  Sender: FDA-Public Use
  Company Number: JP-GILEAD-2016-0245823

PATIENT
  Age: 75 Year
  Sex: Female

DRUGS (5)
  1. JANUVIA [Concomitant]
     Active Substance: SITAGLIPTIN PHOSPHATE
     Dosage: UNK
  2. TENOFOVIR DISOPROXIL FUMARATE. [Suspect]
     Active Substance: TENOFOVIR DISOPROXIL FUMARATE
     Indication: CHRONIC HEPATITIS B
     Dosage: 300 MG, QD
     Route: 048
     Dates: start: 20161104, end: 201611
  3. GLIMEPIRIDE. [Suspect]
     Active Substance: GLIMEPIRIDE
     Indication: PRODUCT USED FOR UNKNOWN INDICATION
     Dosage: UNK
     Route: 065
  4. PERSANTIN [Concomitant]
     Active Substance: DIPYRIDAMOLE
     Dosage: UNK
  5. PRAVASTATIN SODIUM. [Concomitant]
     Active Substance: PRAVASTATIN SODIUM
     Dosage: UNK

REACTIONS (4)
  - Altered state of consciousness [Recovered/Resolved with Sequelae]
  - Abdominal distension [Unknown]
  - Hypoglycaemic encephalopathy [Recovered/Resolved with Sequelae]
  - Hypophagia [Recovered/Resolved with Sequelae]

NARRATIVE: CASE EVENT DATE: 201611
